FAERS Safety Report 8065028-1 (Version None)
Quarter: 2012Q1

REPORT INFORMATION
  Report Type: 
  Country: None (occurrence: None)
  Receive Date: 20120124
  Receipt Date: 20120118
  Transmission Date: 20120608
  Serious: No
  Sender: FDA-Public Use
  Company Number: US-PFIZER INC-2012014692

PATIENT
  Sex: Female
  Weight: 86 kg

DRUGS (2)
  1. NEURONTIN [Suspect]
     Indication: NEUROPATHY PERIPHERAL
     Dosage: UNK
     Route: 048
     Dates: start: 20030101, end: 20100101
  2. LYRICA [Suspect]
     Indication: PAIN
     Dosage: 150 MG, 2X/DAY
     Dates: start: 20100901

REACTIONS (3)
  - RASH PRURITIC [None]
  - PAIN [None]
  - SKIN DISCOLOURATION [None]
